FAERS Safety Report 5426150-9 (Version None)
Quarter: 2007Q3

REPORT INFORMATION
  Report Type: 
  Country: None (occurrence: None)
  Receive Date: 20070827
  Receipt Date: 20070823
  Transmission Date: 20080115
  Serious: No
  Sender: FDA-Public Use
  Company Number: FR-ELI_LILLY_AND_COMPANY-FR200707005569

PATIENT
  Age: 48 Year
  Sex: Male
  Weight: 62 kg

DRUGS (7)
  1. ZYPREXA [Suspect]
     Indication: DELUSION
     Dosage: 30 MG, DAILY (1/D)
     Route: 048
     Dates: start: 20040416
  2. PIPORTIL [Concomitant]
     Indication: DELUSION
     Dosage: 200 MG, OTHER
     Route: 030
     Dates: start: 20031128
  3. ZYPREXA [Suspect]
     Dosage: 30 MG, DAILY (1/D)
     Route: 048
     Dates: end: 20070601
  4. TERCIAN [Concomitant]
     Indication: SEDATION
     Dosage: 300 MG, DAILY (1/D)
     Route: 048
  5. DEPAKOTE [Concomitant]
     Indication: AFFECTIVE DISORDER
     Dosage: 1.5 G, DAILY (1/D)
     Route: 048
  6. GUTRON [Concomitant]
     Dosage: 3 D/F, DAILY (1/D)
     Route: 048
  7. PARKINANE LP [Concomitant]
     Indication: TREMOR
     Dosage: 10 MG, DAILY (1/D)
     Route: 048

REACTIONS (4)
  - LEUKOPENIA [None]
  - LYMPHOCYTE COUNT DECREASED [None]
  - NEUTROPHIL COUNT DECREASED [None]
  - OVERDOSE [None]
